FAERS Safety Report 4478886-4 (Version None)
Quarter: 2004Q4

REPORT INFORMATION
  Report Type: 
  Country: None (occurrence: None)
  Receive Date: 20041015
  Receipt Date: 20040930
  Transmission Date: 20050328
  Serious: Yes (Death, Life-Threatening, Hospitalization)
  Sender: FDA-Public Use
  Company Number: N124438

PATIENT
  Age: 90 Year
  Sex: Female

DRUGS (6)
  1. (CLOPIDOGREL) - TABLET - 75 MG [Suspect]
     Indication: CAROTID ARTERY STENOSIS
     Dosage: 75 MG QD ORAL  A FEW WEEKS
     Route: 048
     Dates: start: 20000201, end: 20000330
  2. AVAPRO - (IRBESARTAN) - TABLET - 150 MG/TABLET - 150 MG [Suspect]
     Dosage: 150 MG QD / DOSE INCREASED (OVER 150 MG/D NOS) ORAL
     Route: 048
     Dates: end: 20000401
  3. ALLOPURINOL [Concomitant]
  4. FERROGRADUMET (FERROUS SULFATE) [Concomitant]
  5. SEREPAX (OXAZEPAM) [Concomitant]
  6. COLOXYL (DOCUSATE SODIUM) [Concomitant]

REACTIONS (12)
  - BLOOD PRESSURE SYSTOLIC INCREASED [None]
  - FALL [None]
  - GENERAL PHYSICAL HEALTH DETERIORATION [None]
  - HEPATIC CYST [None]
  - HEPATIC ENCEPHALOPATHY [None]
  - HEPATIC NECROSIS [None]
  - HEPATITIS CHOLESTATIC [None]
  - HODGKIN'S DISEASE [None]
  - IRON DEFICIENCY ANAEMIA [None]
  - ISCHAEMIA [None]
  - ORTHOSTATIC HYPOTENSION [None]
  - RED BLOOD CELL SEDIMENTATION RATE INCREASED [None]
